FAERS Safety Report 13681881 (Version 1)
Quarter: 2017Q2

REPORT INFORMATION
  Report Type: Spontaneous
  Country: US (occurrence: US)
  Receive Date: 20170622
  Receipt Date: 20170622
  Transmission Date: 20170830
  Serious: No
  Sender: FDA-Public Use
  Company Number: None

PATIENT
  Age: 55 Year
  Sex: Female

DRUGS (1)
  1. COPAXONE [Suspect]
     Active Substance: GLATIRAMER ACETATE

REACTIONS (5)
  - Injection site reaction [None]
  - Tremor [None]
  - Chest pain [None]
  - Flushing [None]
  - Influenza like illness [None]

NARRATIVE: CASE EVENT DATE: 20170620
